FAERS Safety Report 12471679 (Version 1)
Quarter: 2016Q2

REPORT INFORMATION
  Report Type: Spontaneous
  Country: US (occurrence: None)
  Receive Date: 20160615
  Receipt Date: 20160615
  Transmission Date: 20160815
  Serious: Yes (Life-Threatening, Hospitalization)
  Sender: FDA-Public Use
  Company Number: None

PATIENT
  Age: 60 Year
  Sex: Female

DRUGS (13)
  1. IMODIUM [Concomitant]
     Active Substance: LOPERAMIDE HYDROCHLORIDE
  2. ASA [Concomitant]
     Active Substance: ASPIRIN
  3. FLONASE [Concomitant]
     Active Substance: FLUTICASONE PROPIONATE
  4. NTG [Concomitant]
     Active Substance: NITROGLYCERIN
  5. BENADRYL [Concomitant]
     Active Substance: DIPHENHYDRAMINE HYDROCHLORIDE
  6. BENTYL [Concomitant]
     Active Substance: DICYCLOMINE HYDROCHLORIDE
  7. OXYCONTIN [Suspect]
     Active Substance: OXYCODONE HYDROCHLORIDE
     Indication: PAIN
     Route: 048
  8. PERCOCET [Suspect]
     Active Substance: ACETAMINOPHEN\OXYCODONE HYDROCHLORIDE
     Indication: PAIN
     Dosage: 1 TABLET Q8HRS PRN PO
     Route: 048
  9. CYMBALTA [Concomitant]
     Active Substance: DULOXETINE HYDROCHLORIDE
  10. Q TUSSIN [Concomitant]
  11. ABILIFY [Concomitant]
     Active Substance: ARIPIPRAZOLE
  12. VITAMIN D [Concomitant]
     Active Substance: CHOLECALCIFEROL
  13. APRESOLINE HYDROCHLORIDE [Concomitant]
     Active Substance: HYDRALAZINE HYDROCHLORIDE

REACTIONS (2)
  - Respiratory failure [None]
  - Cardiac arrest [None]

NARRATIVE: CASE EVENT DATE: 20160105
